FAERS Safety Report 20500751 (Version 1)
Quarter: 2022Q1

REPORT INFORMATION
  Report Type: Spontaneous
  Country: US (occurrence: None)
  Receive Date: 20220218
  Receipt Date: 20220218
  Transmission Date: 20220423
  Serious: Yes (Hospitalization, Disabling)
  Sender: FDA-Public Use
  Company Number: None

PATIENT
  Age: 59 Year
  Sex: Female
  Weight: 49.5 kg

DRUGS (1)
  1. PROLIA [Suspect]
     Active Substance: DENOSUMAB
     Indication: Osteoporosis
     Dosage: OTHER FREQUENCY : ONCE EVERY 6 MONTH;?
     Route: 030
     Dates: start: 20141109, end: 20200529

REACTIONS (4)
  - Pain in extremity [None]
  - Fall [None]
  - Injury [None]
  - Femur fracture [None]

NARRATIVE: CASE EVENT DATE: 20200530
